FAERS Safety Report 16933920 (Version 1)
Quarter: 2019Q4

REPORT INFORMATION
  Report Type: Spontaneous
  Country: US (occurrence: US)
  Receive Date: 20191018
  Receipt Date: 20191018
  Transmission Date: 20200122
  Serious: No
  Sender: FDA-Public Use
  Company Number: US-ASTRAZENECA-2019SF35553

PATIENT
  Sex: Female

DRUGS (3)
  1. ZOFRAN [Concomitant]
     Active Substance: ONDANSETRON HYDROCHLORIDE
  2. LYNPARZA [Suspect]
     Active Substance: OLAPARIB
     Indication: OVARIAN CANCER
     Dosage: UNKNOWN
     Route: 048
  3. LYNPARZA [Suspect]
     Active Substance: OLAPARIB
     Indication: OVARIAN CANCER
     Dosage: UNKNOWN
     Route: 048
     Dates: start: 20190822

REACTIONS (3)
  - Intentional product misuse [Unknown]
  - Malaise [Unknown]
  - Nausea [Unknown]

NARRATIVE: CASE EVENT DATE: 20190822
